FAERS Safety Report 7328565-0 (Version None)
Quarter: 2011Q1

REPORT INFORMATION
  Report Type: 
  Country: None (occurrence: None)
  Receive Date: 20110303
  Receipt Date: 20110210
  Transmission Date: 20110831
  Serious: Yes (Other)
  Sender: FDA-Public Use
  Company Number: US-BAYER-201034368NA

PATIENT
  Sex: Male
  Weight: 79.365 kg

DRUGS (21)
  1. VISIPAQUE [IODINE,IODIXANOL] [Concomitant]
     Indication: CATHETERISATION CARDIAC
     Dosage: 170 ML, UNK
     Dates: start: 20060731, end: 20060731
  2. WARFARIN SODIUM [Concomitant]
     Dosage: 2 MG, UNK
  3. FERROUS SULFATE TAB [Concomitant]
     Dosage: 325 MG, TID
  4. MULTIHANCE [Suspect]
     Indication: ANGIOGRAM
     Dosage: 12 ML, UNK
     Route: 042
     Dates: start: 20071030, end: 20071030
  5. METOPROLOL SUCCINATE [Concomitant]
  6. ASPIRIN [Concomitant]
     Dosage: 325 MG, UNK
  7. OMNISCAN [Suspect]
     Indication: NUCLEAR MAGNETIC RESONANCE IMAGING ABDOMINAL
     Route: 042
     Dates: start: 20060112, end: 20060112
  8. NORVASC [Concomitant]
     Indication: HYPERTENSION
     Dosage: 5 MG, BID
  9. CLONIDINE [Concomitant]
     Dosage: 0.2 MG, UNK
  10. EPOGEN [Concomitant]
     Dosage: 20000IU WITH DIALYSIS
  11. OPTIMARK [Suspect]
     Indication: NUCLEAR MAGNETIC RESONANCE IMAGING ABDOMINAL
     Route: 042
     Dates: start: 20060525, end: 20060525
  12. PROGRAF [Concomitant]
     Indication: IMMUNOSUPPRESSION
     Dosage: 4.5 MG, BID
  13. VALSARTAN [Concomitant]
     Dosage: 160 MG, UNK
  14. MAGNEVIST [Suspect]
     Indication: NUCLEAR MAGNETIC RESONANCE IMAGING
     Route: 042
     Dates: start: 20060206, end: 20060206
  15. CYTOXAN [Concomitant]
  16. SEVELAMER [Concomitant]
     Dosage: 3200 MG, TID
  17. LEVOTHYROXINE [Concomitant]
     Dosage: 0.1 MG, UNK
  18. NEPHROCAPS [Concomitant]
  19. VISIPAQUE [IODINE,IODIXANOL] [Concomitant]
     Dosage: 125 ML
     Dates: start: 20070220, end: 20070220
  20. PREDNISONE [Concomitant]
     Dosage: 7.5 MG, UNK
  21. PLAVIX [Concomitant]

REACTIONS (16)
  - FIBROSIS [None]
  - SKIN DISORDER [None]
  - DERMATITIS [None]
  - SKIN SWELLING [None]
  - SKIN TIGHTNESS [None]
  - OEDEMA [None]
  - JOINT CONTRACTURE [None]
  - SKIN HYPERTROPHY [None]
  - SKIN HYPERPIGMENTATION [None]
  - SKIN INDURATION [None]
  - JOINT RANGE OF MOTION DECREASED [None]
  - NEPHROGENIC SYSTEMIC FIBROSIS [None]
  - PAIN [None]
  - SKIN EXFOLIATION [None]
  - JOINT STIFFNESS [None]
  - MOBILITY DECREASED [None]
